FAERS Safety Report 4644562-8 (Version None)
Quarter: 2005Q2

REPORT INFORMATION
  Report Type: 
  Country: None (occurrence: None)
  Receive Date: 20050331
  Receipt Date: 20041216
  Transmission Date: 20051028
  Serious: No
  Sender: FDA-Public Use
  Company Number: 04P-163-0278580-00

PATIENT
  Age: 74 Year
  Sex: Female
  Weight: 54.4316 kg

DRUGS (9)
  1. HUMIRA [Suspect]
     Indication: RHEUMATOID ARTHRITIS
     Dosage: 40 MG, 1 IN 2 WK, SUBCUTANEOUS
     Route: 058
     Dates: start: 20040910, end: 20041216
  2. PREDNISONE [Concomitant]
  3. METHOTREXATE [Concomitant]
  4. LEVOTHYROXINE SODIUM [Concomitant]
  5. RISEDRONATE SODIUM [Concomitant]
  6. NAPROXEN SODIUM [Concomitant]
  7. CALCIUM WITH VITAMIN D [Concomitant]
  8. FOLIC ACID [Concomitant]
  9. UNITTHYROID [Concomitant]

REACTIONS (1)
  - DRUG INEFFECTIVE [None]
